FAERS Safety Report 4333994-3 (Version None)
Quarter: 2004Q2

REPORT INFORMATION
  Report Type: 
  Country: None (occurrence: None)
  Receive Date: 20040402
  Receipt Date: 20040324
  Transmission Date: 20050107
  Serious: Yes (Death)
  Sender: FDA-Public Use
  Company Number: 2004205764GB

PATIENT
  Age: 66 Year
  Sex: Male

DRUGS (5)
  1. SALAZOPYRIN (SULFASALZINE) TABLET [Suspect]
     Dosage: UNK, ORAL
     Route: 048
     Dates: start: 20031101
  2. INDORAMIN [Suspect]
     Dosage: UNK, ORAL
     Route: 048
     Dates: start: 20031101
  3. VERAPAMIL [Concomitant]
  4. BENDROFLUAZIDE [Concomitant]
  5. IRON SULFATETHIAMIN COMPOUND TAB [Concomitant]

REACTIONS (2)
  - COMPLETED SUICIDE [None]
  - DEPRESSION [None]
